FAERS Safety Report 6357001-6 (Version None)
Quarter: 2009Q3

REPORT INFORMATION
  Report Type: 
  Country: None (occurrence: None)
  Receive Date: 20090915
  Receipt Date: 20081120
  Transmission Date: 20100115
  Serious: No
  Sender: FDA-Public Use
  Company Number: US-ABBOTT-08P-163-0489124-00

PATIENT
  Sex: Male

DRUGS (3)
  1. DEPAKOTE [Suspect]
     Indication: DEMENTIA
     Route: 048
     Dates: start: 20080919
  2. DEPAKOTE [Suspect]
     Indication: ABNORMAL BEHAVIOUR
  3. MEMANTINE HCL [Concomitant]
     Indication: DEMENTIA
     Dosage: UNKNOWN

REACTIONS (2)
  - ABNORMAL BEHAVIOUR [None]
  - MEDICATION RESIDUE [None]
